FAERS Safety Report 10368339 (Version 1)
Quarter: 2014Q3

REPORT INFORMATION
  Report Type: Spontaneous
  Country: US (occurrence: None)
  Receive Date: 20140805
  Receipt Date: 20140805
  Transmission Date: 20150326
  Serious: Yes (Disabling, Other)
  Sender: FDA-Public Use
  Company Number: 2473082

PATIENT
  Age: 61 Year
  Sex: Female

DRUGS (1)
  1. METHOTREXATE [Suspect]
     Active Substance: METHOTREXATE
     Indication: BREAST CANCER
     Dosage: 155 MG MILLIGRAM(S), UNKNOWN, INTRATHECAL ?
     Route: 037

REACTIONS (7)
  - Somnolence [None]
  - Toxicity to various agents [None]
  - Hypertension [None]
  - Memory impairment [None]
  - Accidental overdose [None]
  - Confusional state [None]
  - Convulsion [None]
